FAERS Safety Report 12350087 (Version 1)
Quarter: 2016Q2

REPORT INFORMATION
  Report Type: Spontaneous
  Country: US (occurrence: US)
  Receive Date: 20160510
  Receipt Date: 20160510
  Transmission Date: 20160815
  Serious: Yes (Hospitalization)
  Sender: FDA-Public Use
  Company Number: US-FRESENIUS KABI-FK201602549

PATIENT
  Age: 2 Month
  Sex: Female

DRUGS (1)
  1. GLUCAGON (MANUFACTURER UNKNOWN) [Suspect]
     Active Substance: GLUCAGON
     Indication: DIABETES MELLITUS MANAGEMENT
     Route: 042

REACTIONS (1)
  - Necrolytic migratory erythema [Recovered/Resolved]
